FAERS Safety Report 7539632-0 (Version None)
Quarter: 2011Q2

REPORT INFORMATION
  Report Type: 
  Country: None (occurrence: None)
  Receive Date: 20110609
  Receipt Date: 20110609
  Transmission Date: 20111010
  Serious: Yes (Hospitalization)
  Sender: FDA-Public Use
  Company Number: None

PATIENT
  Sex: Female
  Weight: 65.7716 kg

DRUGS (2)
  1. CALCIUM AND MAGNESIUM SOFGEL 600 IU OF VITAMIN D PER 3 SOFTGELS NOW FO [Suspect]
  2. CALCIUM AND MAGNESIUM SOFTGEL 600 IU OF VITAMIN D PER 3 SOFTGELLS NOW [Suspect]
     Dosage: 600 IU PER DAY PO
     Route: 048

REACTIONS (9)
  - FATIGUE [None]
  - PRODUCT MEASURED POTENCY ISSUE [None]
  - NAUSEA [None]
  - PRODUCT QUALITY ISSUE [None]
  - CONFUSIONAL STATE [None]
  - HYPERCALCAEMIA [None]
  - RENAL IMPAIRMENT [None]
  - ATAXIA [None]
  - VITAMIN D INCREASED [None]
